FAERS Safety Report 19300336 (Version 2)
Quarter: 2021Q2

REPORT INFORMATION
  Report Type: Report from Study
  Country: US (occurrence: US)
  Receive Date: 20210524
  Receipt Date: 20210607
  Transmission Date: 20210717
  Serious: Yes (Other)
  Sender: FDA-Public Use
  Company Number: US-CELGENEUS-USA-20210504654

PATIENT
  Sex: Male
  Weight: 85.58 kg

DRUGS (29)
  1. ZOLOFT [Concomitant]
     Active Substance: SERTRALINE HYDROCHLORIDE
     Indication: DEPRESSION
     Dosage: 25 MILLIGRAM
     Route: 048
     Dates: start: 20110114
  2. COLESTIPOL [Concomitant]
     Active Substance: COLESTIPOL
     Indication: DIARRHOEA
     Dosage: 2 GRAM
     Route: 048
     Dates: start: 20170215
  3. K?PHOS NEUTRAL [Concomitant]
     Active Substance: POTASSIUM PHOSPHATE\SODIUM PHOSPHATE
     Dosage: 500 MILLIGRAM
     Route: 048
     Dates: start: 20170614, end: 20170614
  4. LORAZEPAM. [Concomitant]
     Active Substance: LORAZEPAM
     Indication: ANXIETY
     Route: 048
     Dates: start: 20160114
  5. COCOA BUTTER [Concomitant]
     Active Substance: COCOA BUTTER
     Indication: NEUROPATHY PERIPHERAL
     Route: 061
     Dates: start: 20170222
  6. PREDNISONE. [Concomitant]
     Active Substance: PREDNISONE
     Indication: FATIGUE
     Dosage: 5 MILLIGRAM
     Route: 048
     Dates: start: 20170517
  7. LEVAQUIN [Concomitant]
     Active Substance: LEVOFLOXACIN
     Indication: UPPER RESPIRATORY TRACT INFECTION
     Route: 048
     Dates: start: 2015, end: 201901
  8. ZITHROMAX [Concomitant]
     Active Substance: AZITHROMYCIN DIHYDRATE
     Indication: UPPER RESPIRATORY TRACT INFECTION
     Route: 048
     Dates: start: 201710, end: 201710
  9. AUGMENTIN [Concomitant]
     Active Substance: AMOXICILLIN\CLAVULANATE POTASSIUM
     Indication: CONJUNCTIVITIS
     Route: 048
     Dates: start: 201512, end: 201512
  10. POTASSIUM CHLORIDE. [Concomitant]
     Active Substance: POTASSIUM CHLORIDE
     Indication: PROPHYLAXIS
  11. POMALIDOMIDE [Suspect]
     Active Substance: POMALIDOMIDE
     Indication: PLASMA CELL MYELOMA
     Dosage: 4 MILLIGRAM
     Route: 048
     Dates: start: 20160907, end: 20190130
  12. MORPHINE [Concomitant]
     Active Substance: MORPHINE
     Indication: PREMEDICATION
     Dosage: 30 MILLIGRAM
     Route: 048
     Dates: start: 20160810, end: 20160810
  13. VITAMIN B COMPLEX [Concomitant]
     Active Substance: CYANOCOBALAMIN\DEXPANTHENOL\NIACINAMIDE\PYRIDOXINE HYDROCHLORIDE\RIBOFLAVIN 5^-PHOSPHATE SODIUM\THIAMINE HYDROCHLORIDE\VITAMIN B COMPLEX
     Indication: NEUROPATHY PERIPHERAL
     Route: 048
     Dates: start: 20170322
  14. K?PHOS NEUTRAL [Concomitant]
     Active Substance: POTASSIUM PHOSPHATE\SODIUM PHOSPHATE
     Dosage: 500 MILLIGRAM
     Route: 048
     Dates: start: 20170517, end: 201706
  15. POTASSIUM CHLORIDE. [Concomitant]
     Active Substance: POTASSIUM CHLORIDE
     Indication: HYPOKALAEMIA
     Dosage: 20 MILLIEQUIVALENTS
     Route: 048
     Dates: start: 20190213, end: 20190908
  16. ADVIL [Concomitant]
     Active Substance: IBUPROFEN
     Indication: NECK PAIN
     Route: 048
     Dates: start: 201811, end: 201812
  17. DEXAMETHASONE. [Suspect]
     Active Substance: DEXAMETHASONE
     Indication: PLASMA CELL MYELOMA
     Dosage: 4 MILLIGRAM
     Route: 048
     Dates: start: 20160907, end: 20190131
  18. ZOLOFT [Concomitant]
     Active Substance: SERTRALINE HYDROCHLORIDE
     Indication: ANXIETY
  19. AMLODIPINE [Concomitant]
     Active Substance: AMLODIPINE BESYLATE
     Indication: HYPERTENSION
     Dosage: 5 MILLIGRAM
     Route: 048
     Dates: start: 20160810
  20. ASPIRIN. [Concomitant]
     Active Substance: ASPIRIN
     Indication: THROMBOSIS PROPHYLAXIS
     Dosage: 81 MILLIGRAM
     Route: 048
     Dates: start: 20160907
  21. K?PHOS NEUTRAL [Concomitant]
     Active Substance: POTASSIUM PHOSPHATE\SODIUM PHOSPHATE
     Indication: HYPOPHOSPHATAEMIA
     Dosage: 500 MILLIGRAM
     Route: 048
     Dates: start: 20170517, end: 20170517
  22. ZITHROMAX [Concomitant]
     Active Substance: AZITHROMYCIN DIHYDRATE
     Dosage: 500 MILLIGRAM
     Route: 048
     Dates: start: 20181003, end: 20181007
  23. NEUPOGEN [Concomitant]
     Active Substance: FILGRASTIM
     Indication: NEUTROPHIL COUNT DECREASED
     Dosage: 480 MICROGRAM
     Route: 048
     Dates: start: 20190213, end: 20190213
  24. ACY?241 [Suspect]
     Active Substance: CITARINOSTAT
     Indication: PLASMA CELL MYELOMA
     Dosage: 4 MILLIGRAM
     Route: 048
     Dates: start: 20160907, end: 20190130
  25. ATORVASTATIN [Concomitant]
     Active Substance: ATORVASTATIN
     Indication: HYPERLIPIDAEMIA
     Dosage: 10 MILLIGRAM
     Route: 048
     Dates: start: 20110114
  26. ACYCLOVIR. [Concomitant]
     Active Substance: ACYCLOVIR
     Indication: INFECTION PROPHYLAXIS
     Dosage: 800 MILLIGRAM
     Route: 048
     Dates: start: 20160810
  27. TOPICAL BACITRACIN [Concomitant]
     Indication: THERMAL BURN
     Route: 061
     Dates: start: 20151130, end: 20161228
  28. APIXABAN [Concomitant]
     Active Substance: APIXABAN
     Indication: THROMBOPHLEBITIS SUPERFICIAL
     Dosage: 10 MILLIGRAM
     Route: 048
     Dates: start: 20171122
  29. AUGMENTIN [Concomitant]
     Active Substance: AMOXICILLIN\CLAVULANATE POTASSIUM
     Indication: URINARY TRACT INFECTION

REACTIONS (1)
  - Myelodysplastic syndrome transformation [Not Recovered/Not Resolved]

NARRATIVE: CASE EVENT DATE: 20210505
